FAERS Safety Report 8451832-4 (Version None)
Quarter: 2012Q2

REPORT INFORMATION
  Report Type: 
  Country: None (occurrence: None)
  Receive Date: 20120620
  Receipt Date: 20120320
  Transmission Date: 20120825
  Serious: No
  Sender: FDA-Public Use
  Company Number: US-VERTEX PHARMACEUTICALS INC.-AE-2012-004038

PATIENT
  Sex: Male
  Weight: 70.37 kg

DRUGS (4)
  1. ATRIPLA [Concomitant]
  2. RIBASPHERE [Concomitant]
     Indication: HEPATITIS C
     Dates: start: 20110729
  3. PEGINTERFERON ALFA-2A [Concomitant]
     Indication: HEPATITIS C
     Dates: start: 20110729
  4. INCIVEK [Suspect]
     Indication: HEPATITIS C
     Route: 048
     Dates: start: 20110729, end: 20111001

REACTIONS (5)
  - MUSCLE SPASMS [None]
  - CHILLS [None]
  - ANAEMIA [None]
  - DIARRHOEA [None]
  - HAEMOGLOBIN DECREASED [None]
